FAERS Safety Report 10357237 (Version 3)
Quarter: 2014Q3

REPORT INFORMATION
  Report Type: Report from Study
  Country: ES (occurrence: ES)
  Receive Date: 20140801
  Receipt Date: 20140826
  Transmission Date: 20150326
  Serious: Yes (Hospitalization, Other)
  Sender: FDA-Public Use
  Company Number: PHHO2014ES006249

PATIENT

DRUGS (23)
  1. CEFTRIAXONE. [Concomitant]
     Active Substance: CEFTRIAXONE
     Indication: PROPHYLAXIS
     Dosage: 2 G, UNK (2 G OID)
     Route: 042
     Dates: start: 20140419, end: 20140419
  2. ACTRAPID [Concomitant]
     Active Substance: INSULIN HUMAN
     Indication: DIABETES MELLITUS
     Dosage: UNK, PRN
     Dates: start: 20140422
  3. CERTICAN [Suspect]
     Active Substance: EVEROLIMUS
     Indication: RENAL TRANSPLANT
     Dosage: 1 MG, BID
     Route: 048
     Dates: start: 20140419, end: 20140430
  4. TACROLIMUS. [Suspect]
     Active Substance: TACROLIMUS
     Indication: RENAL TRANSPLANT
     Dosage: 1 MG, QD
     Route: 048
     Dates: start: 20140420
  5. TACROLIMUS. [Suspect]
     Active Substance: TACROLIMUS
     Dosage: 2 MG, BID
     Route: 048
     Dates: start: 20140630
  6. AMLODIPINE [Concomitant]
     Active Substance: AMLODIPINE BESYLATE
     Indication: HYPERTENSION
     Dosage: 10 MG, QID
     Route: 048
     Dates: start: 20140421
  7. PREDNISONE. [Suspect]
     Active Substance: PREDNISONE
     Indication: RENAL TRANSPLANT
     Dosage: 10 MG, BID
     Route: 048
     Dates: start: 20140421
  8. PREDNISONE. [Suspect]
     Active Substance: PREDNISONE
     Dosage: 7.5 UNK, UNK
     Route: 048
     Dates: start: 20140618
  9. OMEPRAZOLE. [Concomitant]
     Active Substance: OMEPRAZOLE
     Indication: PROPHYLAXIS
     Dosage: 20 MG, QD
     Route: 042
     Dates: start: 20140419
  10. ENTECAVIR [Concomitant]
     Active Substance: ENTECAVIR
     Indication: HEPATITIS B
     Dosage: 0.5 MG, Q72H
     Route: 048
     Dates: start: 20140423
  11. CALCITRIOL. [Concomitant]
     Active Substance: CALCITRIOL
     Indication: HYPOCALCAEMIA
     Dosage: 0.5 UG, QID
     Dates: start: 20140424
  12. COTRIMOXAZOLE [Concomitant]
     Active Substance: SULFAMETHOXAZOLE\TRIMETHOPRIM
     Indication: PROPHYLAXIS
     Dosage: 400 MG, QD
     Dates: start: 20140515
  13. MASTICAL [Concomitant]
     Indication: PROPHYLAXIS
     Dosage: 1250 MG, BID
     Dates: start: 20140604
  14. MYCOPHENOLIC ACID [Concomitant]
     Active Substance: MYCOPHENOLIC ACID
     Indication: RENAL TRANSPLANT
     Dosage: 720 MG, BID
     Dates: start: 20140419, end: 20140419
  15. ENTECAVIR [Concomitant]
     Active Substance: ENTECAVIR
     Dosage: 1 MG, Q48H
     Dates: start: 20140515
  16. ATENOLOL. [Concomitant]
     Active Substance: ATENOLOL
     Indication: HYPERTENSION
     Dosage: 25 MG, BID
     Route: 048
     Dates: start: 20140427
  17. NOVOMIX 30 [Concomitant]
     Active Substance: INSULIN ASPART
     Indication: TYPE 2 DIABETES MELLITUS
     Dosage: 100 IU/ML, PRN
     Dates: start: 20140528
  18. CERTICAN [Suspect]
     Active Substance: EVEROLIMUS
     Dosage: 1-0-1.25 MG
     Route: 048
     Dates: start: 20140707
  19. METILPREDNISOLONE [Concomitant]
     Active Substance: METHYLPREDNISOLONE
     Indication: RENAL TRANSPLANT
     Dosage: 8 MG, BID
     Route: 042
     Dates: start: 20140419, end: 20140420
  20. NOVOMIX [Concomitant]
     Active Substance: INSULIN ASPART
     Indication: DIABETES MELLITUS
     Dosage: UNK, PRN
     Dates: start: 20140425
  21. ROCALTROL [Concomitant]
     Active Substance: CALCITRIOL
     Indication: PROPHYLAXIS
     Dosage: 0.5 UG, OID (ONCE IN A DAY)
     Dates: start: 20140515
  22. BASILIXIMAB [Concomitant]
     Active Substance: BASILIXIMAB
     Indication: RENAL TRANSPLANT
     Dosage: 20 MG, QD
     Route: 042
     Dates: start: 20140419, end: 20140419
  23. CARDURA [Concomitant]
     Active Substance: DOXAZOSIN MESYLATE
     Indication: HYPERTENSION
     Dosage: 4 MG, QD
     Dates: start: 20140515

REACTIONS (4)
  - Post procedural haemorrhage [Recovered/Resolved]
  - Wound dehiscence [Recovered/Resolved]
  - Thrombocytopenia [Recovered/Resolved]
  - Thrombotic microangiopathy [Not Recovered/Not Resolved]

NARRATIVE: CASE EVENT DATE: 20140419
